FAERS Safety Report 7460107-1 (Version None)
Quarter: 2011Q2

REPORT INFORMATION
  Report Type: 
  Country: None (occurrence: None)
  Receive Date: 20110505
  Receipt Date: 20110425
  Transmission Date: 20111010
  Serious: Yes (Hospitalization, Other)
  Sender: FDA-Public Use
  Company Number: US-ELI_LILLY_AND_COMPANY-US201005004455

PATIENT
  Sex: Female
  Weight: 88.435 kg

DRUGS (8)
  1. BYETTA [Suspect]
     Indication: DIABETES MELLITUS
     Dosage: UNK, UNKNOWN
     Dates: start: 20050601, end: 20080501
  2. LIPITOR [Concomitant]
     Dosage: 40 MG, QD
     Route: 048
  3. PREDNISONE [Concomitant]
     Indication: MYOSITIS
  4. HYDROCHLOROTHIAZIDE [Concomitant]
     Indication: DIURETIC THERAPY
     Dosage: UNK
     Dates: start: 20000101
  5. METFFORMIN HYDROCHLORIDE [Concomitant]
     Indication: DIABETES MELLITUS
     Dosage: UNK
     Route: 048
     Dates: start: 19950101
  6. AVANDIA [Concomitant]
     Indication: DIABETES MELLITUS
     Dosage: UNK
     Route: 048
     Dates: start: 20000101
  7. LISINOPRIL [Concomitant]
     Dosage: 5 MG, QD
     Route: 048
  8. LIPITOR [Concomitant]
     Indication: HYPERCHOLESTEROLAEMIA
     Dosage: UNK
     Dates: start: 20000101

REACTIONS (3)
  - BILIARY DYSKINESIA [None]
  - PANCREATITIS [None]
  - PANCREATITIS CHRONIC [None]
